FAERS Safety Report 18018374 (Version 2)
Quarter: 2020Q3

REPORT INFORMATION
  Report Type: Spontaneous
  Country: US (occurrence: US)
  Receive Date: 20200714
  Receipt Date: 20200715
  Transmission Date: 20201103
  Serious: Yes (Hospitalization, Other)
  Sender: FDA-Public Use
  Company Number: US-HIKMA PHARMACEUTICALS USA INC.-US-H14001-20-03179

PATIENT
  Sex: Male

DRUGS (8)
  1. DEXMEDETOMIDINE. [Suspect]
     Active Substance: DEXMEDETOMIDINE
     Indication: PRODUCT USED FOR UNKNOWN INDICATION
     Dosage: 1 MCG/KG/H
     Route: 065
  2. MIDAZOLAM. [Suspect]
     Active Substance: MIDAZOLAM
     Indication: PRODUCT USED FOR UNKNOWN INDICATION
     Dosage: 0.06MG/KG/H
     Route: 065
  3. MIDAZOLAM. [Suspect]
     Active Substance: MIDAZOLAM
     Dosage: FOUR BOLUSES
     Route: 040
  4. MORPHINE [Suspect]
     Active Substance: MORPHINE
     Dosage: TEN BOLUSES OF MORPHINE (0.1MG/ KG)
     Route: 040
  5. MORPHINE [Suspect]
     Active Substance: MORPHINE
     Dosage: TWO BOLUSES
     Route: 040
  6. MORPHINE [Suspect]
     Active Substance: MORPHINE
     Indication: PRODUCT USED FOR UNKNOWN INDICATION
     Dosage: MAXIMUM OF 0.09 MG/KG/H
     Route: 065
  7. LORAZEPAM. [Suspect]
     Active Substance: LORAZEPAM
     Indication: PRODUCT USED FOR UNKNOWN INDICATION
     Route: 065
  8. MIDAZOLAM. [Suspect]
     Active Substance: MIDAZOLAM
     Dosage: 18 BOLUSES OF MIDAZOLAM (0.1MG/KG)
     Route: 040

REACTIONS (1)
  - Delirium [Recovered/Resolved]
